FAERS Safety Report 5186843-8 (Version None)
Quarter: 2006Q4

REPORT INFORMATION
  Report Type: 
  Country: None (occurrence: None)
  Receive Date: 20061220
  Receipt Date: 20061029
  Transmission Date: 20070319
  Serious: No
  Sender: FDA-Public Use
  Company Number: US-AMGEN-KDL198609

PATIENT
  Sex: Male

DRUGS (2)
  1. ENBREL [Suspect]
     Indication: PSORIATIC ARTHROPATHY
     Route: 058
     Dates: start: 20060401
  2. SULFASALAZINE [Concomitant]
     Dates: start: 20040101

REACTIONS (3)
  - HYPERSENSITIVITY [None]
  - STOMACH DISCOMFORT [None]
  - VOMITING [None]
